FAERS Safety Report 19720668 (Version 1)
Quarter: 2021Q3

REPORT INFORMATION
  Report Type: Spontaneous
  Country: US (occurrence: US)
  Receive Date: 20210819
  Receipt Date: 20210819
  Transmission Date: 20211014
  Serious: No
  Sender: FDA-Public Use
  Company Number: US-SA-2021SA272013

PATIENT
  Sex: Male

DRUGS (3)
  1. SOOLANTRA [Concomitant]
     Active Substance: IVERMECTIN
  2. TADALAFIL. [Concomitant]
     Active Substance: TADALAFIL
  3. DUPIXENT [Suspect]
     Active Substance: DUPILUMAB
     Indication: ILLNESS
     Dosage: 300 MG, QOW
     Route: 058

REACTIONS (1)
  - Injection site pain [Not Recovered/Not Resolved]
